FAERS Safety Report 16747189 (Version 1)
Quarter: 2019Q3

REPORT INFORMATION
  Report Type: Report from Study
  Country: FR (occurrence: FR)
  Receive Date: 20190827
  Receipt Date: 20190827
  Transmission Date: 20191005
  Serious: Yes (Other)
  Sender: FDA-Public Use
  Company Number: PHHO2019FR008255

PATIENT
  Age: 45 Year
  Weight: 92 kg

DRUGS (8)
  1. LAMALINE [Concomitant]
     Indication: HEADACHE
     Dosage: UNK
     Route: 065
     Dates: start: 20190226
  2. MUPIDERM [Concomitant]
     Active Substance: MUPIROCIN
     Indication: HIDRADENITIS
     Dosage: UNK
     Route: 065
     Dates: start: 20190807
  3. TRAMETINIB [Suspect]
     Active Substance: TRAMETINIB
     Indication: MALIGNANT MELANOMA
     Dosage: UNK
     Route: 048
     Dates: start: 20190227
  4. ZINDACLINE [Concomitant]
     Indication: ACNE
     Dosage: UNK
     Route: 065
     Dates: start: 20190226
  5. DABRAFENIB [Suspect]
     Active Substance: DABRAFENIB
     Indication: MALIGNANT MELANOMA
     Dosage: UNK
     Route: 048
     Dates: start: 20190227
  6. IMODIUM [Concomitant]
     Active Substance: LOPERAMIDE HYDROCHLORIDE
     Indication: DIARRHOEA
     Dosage: UNK
     Route: 065
     Dates: start: 20190326
  7. PHLOROGLUCINOL [Concomitant]
     Active Substance: PHLOROGLUCINOL
     Indication: PELVIC PAIN
     Dosage: UNK
     Route: 065
     Dates: start: 20190326
  8. CLOBETASOL [Concomitant]
     Active Substance: CLOBETASOL
     Indication: PALMOPLANTAR KERATODERMA
     Dosage: UNK
     Route: 065
     Dates: start: 20190423

REACTIONS (2)
  - Abdominal pain [Recovered/Resolved]
  - Vomiting [Recovered/Resolved]

NARRATIVE: CASE EVENT DATE: 20190802
